FAERS Safety Report 6289140-2 (Version None)
Quarter: 2009Q3

REPORT INFORMATION
  Report Type: 
  Country: None (occurrence: None)
  Receive Date: 20090728
  Receipt Date: 20090714
  Transmission Date: 20100115
  Serious: Yes (Hospitalization, Other)
  Sender: FDA-Public Use
  Company Number: 001266

PATIENT
  Sex: Female

DRUGS (1)
  1. NITROGLYCERIN [Suspect]
     Dosage: (SUBLINGUAL), (INTRAVENOUS (NOT OTHERWISE SPECIFIED))
     Route: 060

REACTIONS (1)
  - NO ADVERSE EVENT [None]
